FAERS Safety Report 6132535-8 (Version None)
Quarter: 2009Q1

REPORT INFORMATION
  Report Type: 
  Country: None (occurrence: None)
  Receive Date: 20090325
  Receipt Date: 20090219
  Transmission Date: 20090719
  Serious: Yes (Other)
  Sender: FDA-Public Use
  Company Number: DK-GENENTECH-279843

PATIENT
  Sex: Female

DRUGS (1)
  1. MABTHERA [Suspect]
     Indication: LYMPHOMA

REACTIONS (1)
  - EYE INFECTION TOXOPLASMAL [None]
